FAERS Safety Report 23637889 (Version 1)
Quarter: 2024Q1

REPORT INFORMATION
  Report Type: Spontaneous
  Country: US (occurrence: US)
  Receive Date: 20240315
  Receipt Date: 20240315
  Transmission Date: 20240410
  Serious: Yes (Life-Threatening, Hospitalization)
  Sender: FDA-Public Use
  Company Number: US-TEVA-VS-3169406

PATIENT
  Age: 56 Year
  Sex: Female

DRUGS (7)
  1. ALBUTEROL [Suspect]
     Active Substance: ALBUTEROL
     Indication: Asthma
     Dosage: ALBUTEROL, AS NEBULISATION THERAPY
     Route: 065
  2. ALBUTEROL [Suspect]
     Active Substance: ALBUTEROL
  3. ALBUTEROL [Suspect]
     Active Substance: ALBUTEROL
  4. ALBUTEROL [Suspect]
     Active Substance: ALBUTEROL
  5. EPINEPHRINE [Suspect]
     Active Substance: EPINEPHRINE
     Indication: Asthma
     Dosage: EPINEPHRINE
     Route: 030
  6. IPRATROPIUM BROMIDE [Concomitant]
     Active Substance: IPRATROPIUM BROMIDE\IPRATROPIUM BROMIDE ANHYDROUS
     Indication: Asthma
     Dosage: NEBULISATION
     Route: 065
  7. METHYLPREDNISOLONE [Concomitant]
     Active Substance: METHYLPREDNISOLONE
     Indication: Asthma
     Route: 065

REACTIONS (2)
  - Lactic acidosis [Recovering/Resolving]
  - Drug ineffective [Unknown]
